FAERS Safety Report 25174900 (Version 2)
Quarter: 2025Q3

REPORT INFORMATION
  Report Type: Spontaneous
  Country: EU (occurrence: EU)
  Receive Date: 20250408
  Receipt Date: 20250805
  Transmission Date: 20251020
  Serious: Yes (Hospitalization, Other)
  Sender: MYLAN
  Company Number: EU-AMGEN-BGRSP2025053975

PATIENT
  Age: 74 Year
  Sex: Male

DRUGS (44)
  1. OXALIPLATIN [Suspect]
     Active Substance: OXALIPLATIN
     Indication: Colorectal cancer metastatic
  2. OXALIPLATIN [Suspect]
     Active Substance: OXALIPLATIN
     Route: 065
  3. OXALIPLATIN [Suspect]
     Active Substance: OXALIPLATIN
     Route: 065
  4. OXALIPLATIN [Suspect]
     Active Substance: OXALIPLATIN
  5. PANITUMUMAB [Suspect]
     Active Substance: PANITUMUMAB
     Indication: Colorectal cancer metastatic
  6. PANITUMUMAB [Suspect]
     Active Substance: PANITUMUMAB
     Route: 065
  7. PANITUMUMAB [Suspect]
     Active Substance: PANITUMUMAB
     Route: 065
  8. PANITUMUMAB [Suspect]
     Active Substance: PANITUMUMAB
  9. BEVACIZUMAB [Suspect]
     Active Substance: BEVACIZUMAB
     Indication: Colorectal cancer metastatic
     Dates: start: 20220901, end: 20230306
  10. BEVACIZUMAB [Suspect]
     Active Substance: BEVACIZUMAB
     Dates: start: 20220901, end: 20230306
  11. BEVACIZUMAB [Suspect]
     Active Substance: BEVACIZUMAB
     Route: 065
     Dates: start: 20220901, end: 20230306
  12. BEVACIZUMAB [Suspect]
     Active Substance: BEVACIZUMAB
     Route: 065
     Dates: start: 20220901, end: 20230306
  13. BEVACIZUMAB [Suspect]
     Active Substance: BEVACIZUMAB
  14. BEVACIZUMAB [Suspect]
     Active Substance: BEVACIZUMAB
  15. BEVACIZUMAB [Suspect]
     Active Substance: BEVACIZUMAB
     Route: 065
  16. BEVACIZUMAB [Suspect]
     Active Substance: BEVACIZUMAB
     Route: 065
  17. LEUCOVORIN [Suspect]
     Active Substance: LEUCOVORIN\LEUCOVORIN CALCIUM
     Indication: Colorectal cancer metastatic
  18. LEUCOVORIN [Suspect]
     Active Substance: LEUCOVORIN\LEUCOVORIN CALCIUM
     Route: 065
  19. LEUCOVORIN [Suspect]
     Active Substance: LEUCOVORIN\LEUCOVORIN CALCIUM
     Route: 065
  20. LEUCOVORIN [Suspect]
     Active Substance: LEUCOVORIN\LEUCOVORIN CALCIUM
  21. FLUOROURACIL [Suspect]
     Active Substance: FLUOROURACIL
     Indication: Colorectal cancer metastatic
  22. FLUOROURACIL [Suspect]
     Active Substance: FLUOROURACIL
     Route: 065
  23. FLUOROURACIL [Suspect]
     Active Substance: FLUOROURACIL
     Route: 065
  24. FLUOROURACIL [Suspect]
     Active Substance: FLUOROURACIL
  25. CAPECITABINE [Suspect]
     Active Substance: CAPECITABINE
     Indication: Colorectal cancer metastatic
     Dates: start: 20220901, end: 20230306
  26. CAPECITABINE [Suspect]
     Active Substance: CAPECITABINE
     Dates: start: 20220901, end: 20230306
  27. CAPECITABINE [Suspect]
     Active Substance: CAPECITABINE
     Route: 065
     Dates: start: 20220901, end: 20230306
  28. CAPECITABINE [Suspect]
     Active Substance: CAPECITABINE
     Route: 065
     Dates: start: 20220901, end: 20230306
  29. CAPECITABINE [Suspect]
     Active Substance: CAPECITABINE
  30. CAPECITABINE [Suspect]
     Active Substance: CAPECITABINE
  31. CAPECITABINE [Suspect]
     Active Substance: CAPECITABINE
     Route: 065
  32. CAPECITABINE [Suspect]
     Active Substance: CAPECITABINE
     Route: 065
  33. IRINOTECAN [Suspect]
     Active Substance: IRINOTECAN
     Indication: Colorectal cancer metastatic
     Dates: start: 20220901, end: 20230306
  34. IRINOTECAN [Suspect]
     Active Substance: IRINOTECAN
     Dates: start: 20220901, end: 20230306
  35. IRINOTECAN [Suspect]
     Active Substance: IRINOTECAN
     Route: 065
     Dates: start: 20220901, end: 20230306
  36. IRINOTECAN [Suspect]
     Active Substance: IRINOTECAN
     Route: 065
     Dates: start: 20220901, end: 20230306
  37. IRINOTECAN [Suspect]
     Active Substance: IRINOTECAN
  38. IRINOTECAN [Suspect]
     Active Substance: IRINOTECAN
  39. IRINOTECAN [Suspect]
     Active Substance: IRINOTECAN
     Route: 065
  40. IRINOTECAN [Suspect]
     Active Substance: IRINOTECAN
     Route: 065
  41. ENCORAFENIB [Concomitant]
     Active Substance: ENCORAFENIB
  42. ENCORAFENIB [Concomitant]
     Active Substance: ENCORAFENIB
     Route: 065
  43. ENCORAFENIB [Concomitant]
     Active Substance: ENCORAFENIB
     Route: 065
  44. ENCORAFENIB [Concomitant]
     Active Substance: ENCORAFENIB

REACTIONS (11)
  - Colorectal cancer metastatic [Recovering/Resolving]
  - COVID-19 pneumonia [Recovered/Resolved]
  - Neurotoxicity [Recovered/Resolved]
  - Haematotoxicity [Unknown]
  - Blood pressure increased [Recovered/Resolved]
  - Neutropenia [Unknown]
  - Neurological symptom [Unknown]
  - Hypertension [Unknown]
  - Palmar-plantar erythrodysaesthesia syndrome [Recovered/Resolved]
  - Anaemia [Unknown]
  - Therapy partial responder [Unknown]
